FAERS Safety Report 4959979-1 (Version None)
Quarter: 2006Q1

REPORT INFORMATION
  Report Type: 
  Country: None (occurrence: None)
  Receive Date: 20060331
  Receipt Date: 20051020
  Transmission Date: 20060701
  Serious: Yes (Death, Hospitalization)
  Sender: FDA-Public Use
  Company Number: US-MERCK-0510USA08457

PATIENT
  Age: 72 Year
  Sex: Male
  Weight: 103 kg

DRUGS (4)
  1. VIOXX [Suspect]
     Indication: ARTHRITIS
     Route: 048
     Dates: start: 19991209, end: 20031023
  2. VIAGRA [Concomitant]
     Route: 065
  3. NIFEDIPINE [Concomitant]
     Route: 065
  4. ZITHROMAX [Concomitant]
     Route: 065

REACTIONS (7)
  - ANGINA PECTORIS [None]
  - HYPERCHOLESTEROLAEMIA [None]
  - HYPERTENSION [None]
  - MALIGNANT MELANOMA [None]
  - MYOCARDIAL INFARCTION [None]
  - SKIN CANCER [None]
  - THROMBOSIS [None]
